FAERS Safety Report 5928042-5 (Version None)
Quarter: 2008Q4

REPORT INFORMATION
  Report Type: 
  Country: None (occurrence: None)
  Receive Date: 20081023
  Receipt Date: 20081023
  Transmission Date: 20090506
  Serious: Yes (Other)
  Sender: FDA-Public Use
  Company Number: A0752015A

PATIENT
  Age: 45 Year
  Sex: Female

DRUGS (3)
  1. LAMICTAL [Suspect]
     Indication: DEPRESSION
     Dosage: 50MG PER DAY
     Route: 048
     Dates: start: 20080801
  2. WELLBUTRIN [Concomitant]
     Indication: DRUG USE FOR UNKNOWN INDICATION
     Route: 048
  3. ADDERALL 10 [Concomitant]
     Indication: DRUG USE FOR UNKNOWN INDICATION
     Route: 065

REACTIONS (5)
  - APHASIA [None]
  - CONVULSION [None]
  - DYSPNOEA [None]
  - MOOD ALTERED [None]
  - PANIC ATTACK [None]
